FAERS Safety Report 8308650 (Version 3)
Quarter: 2013Q4

REPORT INFORMATION
  Report Type: Spontaneous
  Country: US (occurrence: US)
  Receive Date: 20111222
  Receipt Date: 20131016
  Transmission Date: 20140711
  Serious: Yes (Death)
  Sender: FDA-Public Use
  Company Number: US-PFIZER INC-2011308743

PATIENT
  Age: 57 Year
  Sex: Female

DRUGS (8)
  1. DILTIAZEM HCL [Suspect]
     Route: 048
  2. GABAPENTIN [Suspect]
     Route: 048
  3. METHOTREXATE SODIUM [Suspect]
     Route: 048
  4. VENLAFAXINE HCL [Suspect]
     Route: 048
  5. CLONAZEPAM [Suspect]
     Route: 048
  6. BACLOFEN [Suspect]
     Route: 048
  7. FLUOXETINE [Suspect]
     Route: 048
  8. DIPHENHYDRAMINE [Suspect]
     Route: 048

REACTIONS (1)
  - Completed suicide [Fatal]
